FAERS Safety Report 8175970 (Version 2)
Quarter: 2013Q1

REPORT INFORMATION
  Report Type: Spontaneous
  Country: US (occurrence: US)
  Receive Date: 20111011
  Receipt Date: 20130128
  Transmission Date: 20140127
  Serious: Yes (Hospitalization)
  Sender: FDA-Public Use
  Company Number: US-GLAXOSMITHKLINE-A0791895A

PATIENT
  Age: 61 Year
  Sex: Female
  Weight: 106.8 kg

DRUGS (4)
  1. AVANDAMET [Suspect]
     Indication: DIABETES MELLITUS
     Dosage: 1TAB PER DAY
     Dates: start: 20030812
  2. AVANDIA [Suspect]
     Indication: DIABETES MELLITUS
     Dosage: 4MG TWICE PER DAY
     Route: 048
     Dates: start: 200504, end: 200903
  3. GLUCOPHAGE [Concomitant]
  4. ALDACTAZIDE [Concomitant]

REACTIONS (1)
  - Myocardial infarction [Not Recovered/Not Resolved]
